FAERS Safety Report 9113628 (Version 2)
Quarter: 2013Q4

REPORT INFORMATION
  Report Type: Report from Study
  Country: JP (occurrence: JP)
  Receive Date: 20130208
  Receipt Date: 20131108
  Transmission Date: 20140711
  Serious: Yes (Hospitalization)
  Sender: FDA-Public Use
  Company Number: JP-B.I. PHARMACEUTICALS,INC./RIDGEFIELD-2013-BI-03129NB

PATIENT
  Age: 79 Year
  Sex: Female
  Weight: 39.2 kg

DRUGS (4)
  1. PRADAXA [Suspect]
     Indication: CEREBROVASCULAR ACCIDENT PROPHYLAXIS
     Dosage: 220 MG
     Route: 048
     Dates: start: 20120914, end: 20121101
  2. LUPRAC [Concomitant]
     Dosage: 4 MG
     Route: 048
  3. BLOPRESS [Concomitant]
     Dosage: 8 MG
     Route: 048
  4. PLETAAL [Concomitant]
     Dosage: 100 MG
     Route: 048
     Dates: start: 20120519

REACTIONS (2)
  - Bladder cancer [Recovered/Resolved]
  - Haematuria [Recovered/Resolved]
